FAERS Safety Report 4362480-X (Version None)
Quarter: 2004Q2

REPORT INFORMATION
  Report Type: 
  Country: None (occurrence: None)
  Receive Date: 20040518
  Receipt Date: 20040507
  Transmission Date: 20050107
  Serious: Yes (Hospitalization)
  Sender: FDA-Public Use
  Company Number: US-JNJFOC-20040501854

PATIENT
  Age: 69 Year
  Sex: Male

DRUGS (9)
  1. INFLIXIMAB (INFLIXIMAB, RECOMBINANT) LYOPHILIZED POWDER [Suspect]
     Indication: RHEUMATOID ARTHRITIS
     Dosage: INTRAVENOUS
     Route: 042
     Dates: start: 20010614, end: 20020121
  2. ASACOL [Concomitant]
  3. CELEBREX [Concomitant]
  4. CHOLINE MAGNESIUM TRISALICYLATE (CHOLINE MAGNESIUM TRISALICYLATE) [Concomitant]
  5. COUMADIN [Concomitant]
  6. PREDNISONE [Concomitant]
  7. TESTOSTERONE (TESTOSTERONE) CREAM [Concomitant]
  8. TYLENOL [Concomitant]
  9. TRIAMTERENE (TRIAMTERENE) [Concomitant]

REACTIONS (2)
  - ATRIAL FIBRILLATION [None]
  - CARDIAC PACEMAKER INSERTION [None]
